FAERS Safety Report 14077850 (Version 3)
Quarter: 2017Q4

REPORT INFORMATION
  Report Type: Spontaneous
  Country: JP (occurrence: JP)
  Receive Date: 20171012
  Receipt Date: 20171109
  Transmission Date: 20180321
  Serious: Yes (Death)
  Sender: FDA-Public Use
  Company Number: JP-ROCHE-2006693

PATIENT
  Age: 85 Year
  Sex: Female
  Weight: 39 kg

DRUGS (30)
  1. CICLOSPORIN [Concomitant]
     Active Substance: CYCLOSPORINE
     Route: 065
     Dates: start: 20170116, end: 20170119
  2. JZOLOFT [Concomitant]
     Active Substance: SERTRALINE HYDROCHLORIDE
     Route: 048
  3. MIYA-BM [Concomitant]
     Active Substance: CLOSTRIDIUM BUTYRICUM SPORES STRAIN M-55
     Route: 048
  4. DENOSINE (JAPAN) [Suspect]
     Active Substance: GANCICLOVIR
     Route: 041
     Dates: start: 20170110, end: 20170110
  5. ACINON (JAPAN) [Concomitant]
     Route: 065
  6. PREDONINE [Concomitant]
     Active Substance: PREDNISOLONE
     Route: 048
     Dates: start: 20170220
  7. PREDONINE [Suspect]
     Active Substance: PREDNISOLONE
     Route: 042
  8. BONOTEO [Concomitant]
     Active Substance: MINODRONIC ACID
     Route: 048
     Dates: start: 20170204
  9. PREDONINE [Concomitant]
     Active Substance: PREDNISOLONE
     Route: 048
  10. DENOSINE (JAPAN) [Suspect]
     Active Substance: GANCICLOVIR
     Route: 041
     Dates: start: 20170111, end: 20170121
  11. SIMPONI [Suspect]
     Active Substance: GOLIMUMAB
     Indication: COLITIS ULCERATIVE
     Route: 058
     Dates: start: 20170623
  12. MORPHINE [Concomitant]
     Active Substance: MORPHINE
     Dosage: 40 MG X 0.1/16/HOUR
     Route: 065
  13. BAKTAR [Concomitant]
     Active Substance: SULFAMETHOXAZOLE\TRIMETHOPRIM
     Route: 048
     Dates: start: 20170118, end: 20170121
  14. SPIRONOLACTONE. [Concomitant]
     Active Substance: SPIRONOLACTONE
     Route: 048
  15. ASACOL [Concomitant]
     Active Substance: MESALAMINE
     Route: 048
  16. SIMPONI [Suspect]
     Active Substance: GOLIMUMAB
     Route: 058
     Dates: start: 20170707
  17. PENTASA [Concomitant]
     Active Substance: MESALAMINE
     Route: 048
  18. NIZATIDINE. [Concomitant]
     Active Substance: NIZATIDINE
     Route: 048
  19. SERTRALINE [Concomitant]
     Active Substance: SERTRALINE HYDROCHLORIDE
     Route: 048
  20. PREDONINE [Concomitant]
     Active Substance: PREDNISOLONE
     Route: 048
     Dates: start: 20170116
  21. FOY [Concomitant]
     Active Substance: GABEXATE MESYLATE
     Route: 065
     Dates: start: 20170713
  22. DAIPHEN [Concomitant]
     Active Substance: SULFAMETHOXAZOLE\TRIMETHOPRIM
     Route: 048
  23. DENOSINE (JAPAN) [Suspect]
     Active Substance: GANCICLOVIR
     Indication: PRODUCT USED FOR UNKNOWN INDICATION
     Route: 041
     Dates: start: 20170722, end: 20170724
  24. FUROSEMIDE. [Concomitant]
     Active Substance: FUROSEMIDE
     Route: 048
  25. PREDONINE [Concomitant]
     Active Substance: PREDNISOLONE
     Route: 048
  26. PREDONINE [Suspect]
     Active Substance: PREDNISOLONE
     Indication: COLITIS ULCERATIVE
     Route: 042
  27. PREDONINE [Suspect]
     Active Substance: PREDNISOLONE
     Route: 042
     Dates: start: 20170713
  28. FLAGYL [Concomitant]
     Active Substance: METRONIDAZOLE\METRONIDAZOLE HYDROCHLORIDE
     Route: 065
     Dates: start: 20170713
  29. LIVACT [Concomitant]
     Active Substance: AMINO ACIDS
     Dosage: MORNING
     Route: 048
  30. LIVACT [Concomitant]
     Active Substance: AMINO ACIDS
     Dosage: AT BEDTIME
     Route: 048

REACTIONS (1)
  - Pneumocystis jirovecii pneumonia [Fatal]

NARRATIVE: CASE EVENT DATE: 20170724
